FAERS Safety Report 5757935-7 (Version None)
Quarter: 2008Q2

REPORT INFORMATION
  Report Type: 
  Country: None (occurrence: None)
  Receive Date: 20080530
  Receipt Date: 20080519
  Transmission Date: 20081010
  Serious: No
  Sender: FDA-Public Use
  Company Number: 233961J08USA

PATIENT
  Age: 35 Year
  Sex: Female
  Weight: 46.7205 kg

DRUGS (10)
  1. REBIF [Suspect]
     Indication: MULTIPLE SCLEROSIS
     Dosage: 44 MCG, 3 IN 1 WEEKS, SUBCUTANEOUS
     Route: 058
     Dates: start: 20071009
  2. TOPAMAX [Concomitant]
  3. PROTONIX [Concomitant]
  4. MULTI VITAMINS (MULTIVITAMIN) [Concomitant]
  5. ASPIRIN [Concomitant]
  6. CYMBALTA [Concomitant]
  7. XANAX [Concomitant]
  8. PERCOCET [Concomitant]
  9. PROVIGIL [Concomitant]
  10. FERROUS SULFATE TAB [Concomitant]

REACTIONS (1)
  - CONVULSION [None]
